FAERS Safety Report 14968340 (Version 1)
Quarter: 2018Q2

REPORT INFORMATION
  Report Type: Spontaneous
  Country: BR (occurrence: BR)
  Receive Date: 20180604
  Receipt Date: 20180604
  Transmission Date: 20180711
  Serious: Yes (Other)
  Sender: FDA-Public Use
  Company Number: BR-STRIDES ARCOLAB LIMITED-2018SP004432

PATIENT

DRUGS (1)
  1. TACROLIMUS. [Suspect]
     Active Substance: TACROLIMUS
     Indication: RENAL AND LIVER TRANSPLANT
     Dosage: 7MG DAILY
     Route: 065

REACTIONS (4)
  - Rash erythematous [Unknown]
  - Pruritus [Unknown]
  - Symmetrical drug-related intertriginous and flexural exanthema [Unknown]
  - Skin lesion [Unknown]
